FAERS Safety Report 20062105 (Version 2)
Quarter: 2021Q4

REPORT INFORMATION
  Report Type: Spontaneous
  Country: US (occurrence: US)
  Receive Date: 20211112
  Receipt Date: 20211119
  Transmission Date: 20220304
  Serious: Yes (Other)
  Sender: FDA-Public Use
  Company Number: ALC2021US006172

PATIENT
  Age: 61 Year
  Sex: Female
  Weight: 93.44 kg

DRUGS (2)
  1. SYSTANE ULTRA [Suspect]
     Active Substance: POLYETHYLENE GLYCOL 400\PROPYLENE GLYCOL
     Indication: Meibomian gland dysfunction
     Dosage: 2 DRP, QD
     Route: 047
     Dates: start: 20211104, end: 20211108
  2. SYSTANE ULTRA [Suspect]
     Active Substance: POLYETHYLENE GLYCOL 400\PROPYLENE GLYCOL
     Indication: Dry eye

REACTIONS (9)
  - Eye infection [Recovering/Resolving]
  - Swelling of eyelid [Recovering/Resolving]
  - Eye discharge [Recovering/Resolving]
  - Visual impairment [Recovering/Resolving]
  - Condition aggravated [Recovering/Resolving]
  - Eye swelling [Recovering/Resolving]
  - Ocular hyperaemia [Not Recovered/Not Resolved]
  - Eye pruritus [Recovering/Resolving]
  - Eye pain [Recovering/Resolving]

NARRATIVE: CASE EVENT DATE: 20211104
